FAERS Safety Report 19990640 (Version 1)
Quarter: 2021Q4

REPORT INFORMATION
  Report Type: Spontaneous
  Country: US (occurrence: US)
  Receive Date: 20211024
  Receipt Date: 20211024
  Transmission Date: 20220303
  Serious: Yes (Disabling, Other)
  Sender: FDA-Public Use
  Company Number: None

PATIENT
  Age: 61 Year
  Sex: Male
  Weight: 157.5 kg

DRUGS (1)
  1. DESENEX NOS [Suspect]
     Active Substance: CLOTRIMAZOLE OR MICONAZOLE NITRATE
     Indication: Rash
     Dates: start: 20050501, end: 20211024

REACTIONS (2)
  - Accidental exposure to product [None]
  - Dyspnoea [None]

NARRATIVE: CASE EVENT DATE: 20180731
